FAERS Safety Report 10619880 (Version 1)
Quarter: 2014Q4

REPORT INFORMATION
  Report Type: Spontaneous
  Country: US (occurrence: None)
  Receive Date: 20141201
  Receipt Date: 20141201
  Transmission Date: 20150529
  Serious: Yes (Hospitalization, Disabling)
  Sender: FDA-Public Use
  Company Number: None

PATIENT
  Age: 86 Year
  Sex: Female
  Weight: 108.86 kg

DRUGS (2)
  1. CIPROFLOXACIN. [Suspect]
     Active Substance: CIPROFLOXACIN
     Indication: INFECTION
     Route: 048
     Dates: start: 20141104, end: 20141104
  2. LEVAQUIN [Suspect]
     Active Substance: LEVOFLOXACIN
     Indication: PNEUMONIA
     Route: 048
     Dates: start: 20141106, end: 20141108

REACTIONS (7)
  - Dysarthria [None]
  - Confusional state [None]
  - Tremor [None]
  - Hallucination [None]
  - Muscular weakness [None]
  - Pneumonia [None]
  - Agitation [None]

NARRATIVE: CASE EVENT DATE: 20141104
